FAERS Safety Report 5872832-4 (Version None)
Quarter: 2008Q3

REPORT INFORMATION
  Report Type: 
  Country: None (occurrence: None)
  Receive Date: 20080903
  Receipt Date: 20080825
  Transmission Date: 20090109
  Serious: Yes (Hospitalization)
  Sender: FDA-Public Use
  Company Number: TPA2008A01282

PATIENT
  Age: 56 Year
  Sex: Female
  Weight: 92.0802 kg

DRUGS (6)
  1. ACTOS (PIOFLITAZONE HYDROCHLORIDE) (15 MILLIGRAM, TABLETS) [Suspect]
     Dosage: 15 MG, UNKNOWN, PER ORAL, 30 MG, UNKNOWN, PER ORAL, 45 MG, UNKNOWN, PER ORAL
     Route: 048
     Dates: start: 20030101, end: 20050801
  2. ACTOS (PIOFLITAZONE HYDROCHLORIDE) (15 MILLIGRAM, TABLETS) [Suspect]
     Dosage: 15 MG, UNKNOWN, PER ORAL, 30 MG, UNKNOWN, PER ORAL, 45 MG, UNKNOWN, PER ORAL
     Route: 048
     Dates: end: 20080801
  3. ACTOS (PIOFLITAZONE HYDROCHLORIDE) (15 MILLIGRAM, TABLETS) [Suspect]
     Dosage: 15 MG, UNKNOWN, PER ORAL, 30 MG, UNKNOWN, PER ORAL, 45 MG, UNKNOWN, PER ORAL
     Route: 048
     Dates: start: 20050801
  4. METHOTREXATE [Concomitant]
  5. HUMIRA [Concomitant]
  6. MOTRIN [Concomitant]

REACTIONS (2)
  - ABASIA [None]
  - MYOSITIS [None]
